FAERS Safety Report 4349059-0 (Version None)
Quarter: 2004Q2

REPORT INFORMATION
  Report Type: 
  Country: None (occurrence: None)
  Receive Date: 20040427
  Receipt Date: 20040427
  Transmission Date: 20050107
  Serious: Yes (Other)
  Sender: FDA-Public Use
  Company Number: None

PATIENT
  Age: 8 Year
  Sex: Male
  Weight: 29.0302 kg

DRUGS (4)
  1. SEROQUEL [Suspect]
     Indication: ATTENTION DEFICIT/HYPERACTIVITY DISORDER
     Dosage: 25 MG PO HS
     Route: 048
  2. SEROQUEL [Suspect]
     Indication: TIC
     Dosage: 25 MG PO HS
     Route: 048
  3. ADDERALL 20 [Concomitant]
  4. ADDERALL 10 [Concomitant]

REACTIONS (3)
  - INCREASED APPETITE [None]
  - TIC [None]
  - WEIGHT INCREASED [None]
